FAERS Safety Report 4786291-6 (Version None)
Quarter: 2005Q3

REPORT INFORMATION
  Report Type: 
  Country: None (occurrence: None)
  Receive Date: 20050914
  Receipt Date: 20050302
  Transmission Date: 20060218
  Serious: Yes (Death)
  Sender: FDA-Public Use
  Company Number: 163-20785-05030055

PATIENT
  Age: 78 Year
  Sex: Female

DRUGS (3)
  1. THALOMID [Suspect]
     Indication: OVARIAN CANCER METASTATIC
     Dosage: 50 MG, QD, ORAL
     Route: 048
     Dates: start: 20040830, end: 20041218
  2. PROCRIT [Concomitant]
  3. ANTIDEPRESSANT (ANTIDEPRESSANTS) [Concomitant]

REACTIONS (9)
  - ASTHENIA [None]
  - DEATH [None]
  - DEPRESSION [None]
  - DISEASE PROGRESSION [None]
  - FATIGUE [None]
  - MUSCULAR WEAKNESS [None]
  - PRODUCTIVE COUGH [None]
  - RHINORRHOEA [None]
  - SOMNOLENCE [None]
